FAERS Safety Report 5848315-4 (Version None)
Quarter: 2008Q3

REPORT INFORMATION
  Report Type: 
  Country: None (occurrence: None)
  Receive Date: 20080818
  Receipt Date: 20080808
  Transmission Date: 20090109
  Serious: Yes (Hospitalization)
  Sender: FDA-Public Use
  Company Number: JP-MERCK-0806USA01774

PATIENT
  Age: 80 Year
  Sex: Female
  Weight: 38 kg

DRUGS (7)
  1. STROMECTOL [Suspect]
     Indication: PROPHYLAXIS
     Route: 048
     Dates: start: 20080530, end: 20080530
  2. NORVASC [Concomitant]
     Route: 048
     Dates: start: 20080130, end: 20080605
  3. BUFFERIN [Concomitant]
     Route: 048
     Dates: start: 20080130, end: 20080605
  4. BIOFERMIN [Concomitant]
     Route: 048
     Dates: start: 20080130, end: 20080605
  5. PEPCID RPD [Concomitant]
     Route: 048
     Dates: start: 20080130, end: 20080605
  6. TRIAZOLAM [Concomitant]
     Route: 048
     Dates: start: 20080130
  7. ERYTHROCIN [Suspect]
     Indication: PYREXIA
     Route: 048
     Dates: start: 20080528, end: 20080531

REACTIONS (3)
  - HEPATIC FUNCTION ABNORMAL [None]
  - JAUNDICE [None]
  - PNEUMONIA [None]
